FAERS Safety Report 16249077 (Version 2)
Quarter: 2019Q2

REPORT INFORMATION
  Report Type: Spontaneous
  Country: US (occurrence: US)
  Receive Date: 20190429
  Receipt Date: 20190430
  Transmission Date: 20190711
  Serious: Yes (Hospitalization, Other)
  Sender: FDA-Public Use
  Company Number: US-AUROBINDO-AUR-APL-2019-023498

PATIENT

DRUGS (4)
  1. CLOZAPINE. [Suspect]
     Active Substance: CLOZAPINE
     Dosage: UNK, 25 MG AT A MINIMUM OF EVERY 2 DAYS TO 100 MG BY DAY 10
     Route: 065
  2. CLOZAPINE. [Suspect]
     Active Substance: CLOZAPINE
     Indication: PSYCHIATRIC DECOMPENSATION
     Dosage: 25 MILLIGRAM, AT BED TIME
     Route: 048
  3. CLOZAPINE. [Suspect]
     Active Substance: CLOZAPINE
     Dosage: 100 MILLIGRAM, 2 PRIOR DOSES
     Route: 065
  4. LITHIUM. [Suspect]
     Active Substance: LITHIUM
     Indication: PRODUCT USED FOR UNKNOWN INDICATION
     Dosage: 600 MILLIGRAM, TWO TIMES A DAY
     Route: 048

REACTIONS (19)
  - Dysarthria [Recovered/Resolved]
  - Tachycardia [Recovered/Resolved]
  - Pollakiuria [Recovered/Resolved]
  - Urosepsis [Recovered/Resolved]
  - Vomiting [Recovered/Resolved]
  - Somnolence [Recovered/Resolved]
  - Pyrexia [Recovered/Resolved]
  - Hypotension [Unknown]
  - Myalgia [Recovered/Resolved]
  - Urinary tract infection [Recovered/Resolved]
  - Glomerular filtration rate decreased [Unknown]
  - Eosinophilia [Unknown]
  - Tubulointerstitial nephritis [Recovered/Resolved]
  - Leukocytosis [Unknown]
  - Blood creatinine increased [Recovered/Resolved]
  - Headache [Unknown]
  - Nausea [Recovered/Resolved]
  - Micturition urgency [Recovered/Resolved]
  - Toxicity to various agents [Recovered/Resolved]
